FAERS Safety Report 4323531-1 (Version None)
Quarter: 2004Q1

REPORT INFORMATION
  Report Type: 
  Country: None (occurrence: None)
  Receive Date: 20040322
  Receipt Date: 20040310
  Transmission Date: 20041129
  Serious: Yes (Hospitalization)
  Sender: FDA-Public Use
  Company Number: 2004CG00315

PATIENT
  Age: 1 Day
  Sex: Female
  Weight: 1.7 kg

DRUGS (17)
  1. OMEPRAZOLE [Suspect]
     Dosage: 40 MG DAILY TPL
     Route: 064
     Dates: start: 20031223, end: 20031224
  2. CYTARABINE [Suspect]
     Dates: start: 20031211, end: 20031211
  3. CYTARABINE [Suspect]
     Dates: start: 20031219, end: 20031219
  4. CYTARABINE [Suspect]
     Dates: start: 20031223, end: 20031223
  5. CYCLOPHOSPHAMIDE [Suspect]
     Dates: start: 20031211, end: 20031211
  6. METHOTREXATE [Suspect]
     Dates: start: 20031211, end: 20031211
  7. METHOTREXATE [Suspect]
     Dates: start: 20031219, end: 20031219
  8. METHOTREXATE [Suspect]
     Dates: start: 20031223, end: 20031223
  9. NEUPOGEN [Suspect]
     Dates: start: 20031223, end: 20031224
  10. DOXORUBICIN HCL [Suspect]
     Dates: start: 20031211, end: 20031211
  11. ONCOVIN [Suspect]
     Dates: start: 20031211, end: 20031211
  12. PREDNISONE [Suspect]
     Dates: start: 20031211, end: 20031211
  13. DEPO-MEDROL [Suspect]
     Dates: start: 20031211, end: 20031211
  14. DEPO-MEDROL [Suspect]
     Dates: start: 20031219, end: 20031219
  15. DEPO-MEDROL [Suspect]
     Dates: start: 20031223, end: 20031223
  16. SOLU-MEDROL [Suspect]
     Dosage: 60 MG DAILY TPL
     Route: 064
     Dates: start: 20031223, end: 20031225
  17. TAZOCILLINE [Suspect]
     Dates: start: 20031223, end: 20031225

REACTIONS (6)
  - GAMMA-GLUTAMYLTRANSFERASE INCREASED [None]
  - HYPERBILIRUBINAEMIA NEONATAL [None]
  - JAUNDICE NEONATAL [None]
  - MATERNAL DRUGS AFFECTING FOETUS [None]
  - NEONATAL CHOLESTASIS [None]
  - PREMATURE BABY [None]
